FAERS Safety Report 6294287-0 (Version None)
Quarter: 2009Q3

REPORT INFORMATION
  Report Type: 
  Country: None (occurrence: None)
  Receive Date: 20090803
  Receipt Date: 20090512
  Transmission Date: 20100115
  Serious: No
  Sender: FDA-Public Use
  Company Number: A0783710A

PATIENT
  Age: 53 Year
  Sex: Female

DRUGS (1)
  1. NICORETTE WHITE ICE OTC 4MG [Suspect]
     Dates: start: 20090511, end: 20090511

REACTIONS (3)
  - OROPHARYNGEAL DISCOMFORT [None]
  - PARAESTHESIA ORAL [None]
  - THROAT IRRITATION [None]
